FAERS Safety Report 4967427-0 (Version None)
Quarter: 2006Q2

REPORT INFORMATION
  Report Type: 
  Country: None (occurrence: None)
  Receive Date: 20060407
  Receipt Date: 20060407
  Transmission Date: 20061013
  Serious: Yes (Other)
  Sender: FDA-Public Use
  Company Number: None

PATIENT
  Age: 65 Year
  Sex: Female
  Weight: 71.6683 kg

DRUGS (4)
  1. BSS [Suspect]
     Dosage: INTRAOCULAR
     Route: 031
  2. VIGAMOX [Concomitant]
  3. DUOVISC [Concomitant]
  4. IOL [Concomitant]

REACTIONS (3)
  - ANTERIOR CHAMBER DISORDER [None]
  - EYE OPERATION COMPLICATION [None]
  - PHARMACEUTICAL PRODUCT COMPLAINT [None]
